FAERS Safety Report 17258095 (Version 1)
Quarter: 2020Q1

REPORT INFORMATION
  Report Type: Other
  Country: US (occurrence: US)
  Receive Date: 20200110
  Receipt Date: 20200110
  Transmission Date: 20200409
  Serious: Yes (Hospitalization)
  Sender: FDA-Public Use
  Company Number: US-SUNRISE PHARMACEUTICAL, INC.-2078821

PATIENT
  Age: 36 Year
  Sex: Male

DRUGS (1)
  1. OXYCODONE HYDROCHLORIDE. [Suspect]
     Active Substance: OXYCODONE HYDROCHLORIDE
     Indication: PRODUCT USED FOR UNKNOWN INDICATION

REACTIONS (5)
  - Troponin increased [Recovered/Resolved]
  - Intentional product misuse [Recovered/Resolved]
  - Deafness neurosensory [Recovered/Resolved]
  - Multiple organ dysfunction syndrome [Recovered/Resolved]
  - Unresponsive to stimuli [Recovered/Resolved]
